FAERS Safety Report 8278235-X (Version None)
Quarter: 2012Q2

REPORT INFORMATION
  Report Type: 
  Country: None (occurrence: None)
  Receive Date: 20120412
  Receipt Date: 20120305
  Transmission Date: 20120825
  Serious: Yes (Other)
  Sender: FDA-Public Use
  Company Number: US-ASTRAZENECA-2011SE50488

PATIENT
  Age: 48 Year
  Sex: Male

DRUGS (4)
  1. PROTONIX [Concomitant]
  2. NEXIUM [Suspect]
     Indication: GASTROOESOPHAGEAL REFLUX DISEASE
     Route: 048
     Dates: start: 20100101
  3. NEXIUM [Suspect]
     Route: 048
     Dates: start: 20100101
  4. PRILOSEC [Suspect]
     Route: 048

REACTIONS (11)
  - PANCREATITIS [None]
  - QUALITY OF LIFE DECREASED [None]
  - DRUG INEFFECTIVE [None]
  - WEIGHT DECREASED [None]
  - DRUG DOSE OMISSION [None]
  - DECREASED APPETITE [None]
  - PANCREATIC DISORDER [None]
  - ABDOMINAL DISCOMFORT [None]
  - ABDOMINAL PAIN UPPER [None]
  - APHAGIA [None]
  - SOMNOLENCE [None]
